FAERS Safety Report 9879580 (Version 3)
Quarter: 2014Q2

REPORT INFORMATION
  Report Type: Spontaneous
  Country: US (occurrence: US)
  Receive Date: 20140206
  Receipt Date: 20140404
  Transmission Date: 20141212
  Serious: Yes (Hospitalization)
  Sender: FDA-Public Use
  Company Number: US-B.I. PHARMACEUTICALS,INC./RIDGEFIELD-2013-BI-17413BP

PATIENT
  Sex: Female
  Weight: 58.97 kg

DRUGS (5)
  1. PRADAXA [Suspect]
     Indication: ANTICOAGULANT THERAPY
     Route: 065
     Dates: start: 20110223, end: 20120229
  2. ASPIRIN [Concomitant]
     Route: 065
  3. PREDNISONE [Concomitant]
     Indication: POLYMYALGIA RHEUMATICA
     Route: 065
     Dates: start: 2003, end: 2011
  4. BETHANECHOL [Concomitant]
     Route: 065
  5. AMOXICILLIN [Concomitant]
     Route: 065

REACTIONS (5)
  - Gastrointestinal haemorrhage [Unknown]
  - Ischaemic stroke [Unknown]
  - Diabetes mellitus inadequate control [Unknown]
  - Anaemia [Unknown]
  - Depression [Unknown]
